FAERS Safety Report 16569270 (Version 2)
Quarter: 2019Q3

REPORT INFORMATION
  Report Type: Report from Study
  Country: US (occurrence: US)
  Receive Date: 20190714
  Receipt Date: 20190927
  Transmission Date: 20191004
  Serious: No
  Sender: FDA-Public Use
  Company Number: US-ALEXION PHARMACEUTICALS INC.-A201910653

PATIENT
  Sex: Male

DRUGS (1)
  1. SOLIRIS [Suspect]
     Active Substance: ECULIZUMAB
     Indication: MYASTHENIA GRAVIS
     Route: 065

REACTIONS (8)
  - Pain in extremity [Unknown]
  - Tinnitus [Unknown]
  - Back pain [Unknown]
  - Myalgia [Unknown]
  - Hyperhidrosis [Unknown]
  - Fatigue [Unknown]
  - Musculoskeletal pain [Unknown]
  - Asthenia [Unknown]
